FAERS Safety Report 20891279 (Version 1)
Quarter: 2022Q2

REPORT INFORMATION
  Report Type: Spontaneous
  Country: IN (occurrence: IN)
  Receive Date: 20220530
  Receipt Date: 20220530
  Transmission Date: 20220721
  Serious: Yes (Other)
  Sender: FDA-Public Use
  Company Number: IN-PFIZER INC-202200735945

PATIENT
  Age: 40 Year
  Sex: Male

DRUGS (3)
  1. METHYLPREDNISOLONE [Suspect]
     Active Substance: METHYLPREDNISOLONE
     Indication: Antineutrophil cytoplasmic antibody
     Dosage: UNK
  2. PREDNISOLONE [Suspect]
     Active Substance: PREDNISOLONE
     Indication: Antineutrophil cytoplasmic antibody
     Dosage: UNK
  3. PREDNISOLONE [Suspect]
     Active Substance: PREDNISOLONE
     Dosage: UNK, TAPERED

REACTIONS (4)
  - Vasculitis [Recovered/Resolved]
  - Posterior reversible encephalopathy syndrome [Recovered/Resolved]
  - Microscopic polyangiitis [Recovered/Resolved]
  - Off label use [Unknown]
